FAERS Safety Report 6551972-0 (Version None)
Quarter: 2010Q1

REPORT INFORMATION
  Report Type: 
  Country: None (occurrence: None)
  Receive Date: 20100120
  Receipt Date: 20100105
  Transmission Date: 20100710
  Serious: Yes (Hospitalization, Other)
  Sender: FDA-Public Use
  Company Number: AUR-APL-2010-00111

PATIENT
  Age: 63 Year
  Sex: Male
  Weight: 79.38 kg

DRUGS (1)
  1. SIMVASTATIN [Suspect]
     Dosage: 40 MG DAILY ORAL
     Route: 048
     Dates: start: 20080101

REACTIONS (1)
  - KIDNEY INFECTION [None]
